FAERS Safety Report 8096648-6 (Version None)
Quarter: 2012Q1

REPORT INFORMATION
  Report Type: 
  Country: None (occurrence: None)
  Receive Date: 20120129
  Receipt Date: 20111201
  Transmission Date: 20120608
  Serious: No
  Sender: FDA-Public Use
  Company Number: US-ABBOTT-11P-163-0880114-00

PATIENT
  Sex: Female

DRUGS (1)
  1. HUMIRA [Suspect]
     Indication: JUVENILE ARTHRITIS
     Route: 058
     Dates: start: 20111001

REACTIONS (6)
  - NASOPHARYNGITIS [None]
  - COUGH [None]
  - ORAL HERPES [None]
  - DRUG DOSE OMISSION [None]
  - NASAL CONGESTION [None]
  - PYREXIA [None]
